FAERS Safety Report 8304545-3 (Version None)
Quarter: 2012Q2

REPORT INFORMATION
  Report Type: 
  Country: None (occurrence: None)
  Receive Date: 20120423
  Receipt Date: 20120416
  Transmission Date: 20120825
  Serious: Yes (Hospitalization)
  Sender: FDA-Public Use
  Company Number: PE-VIIV HEALTHCARE LIMITED-A0974226A

PATIENT
  Sex: Female

DRUGS (3)
  1. LAMIVUDINE (EPIVIR HBV) [Suspect]
     Indication: HIV INFECTION
     Dates: start: 20120105, end: 20120305
  2. LOPINAVIR/RITONAVIR [Suspect]
     Indication: HIV INFECTION
     Dates: start: 20120105, end: 20120305
  3. DIDANOSINE [Suspect]
     Indication: HIV INFECTION
     Dates: start: 20120105, end: 20120305

REACTIONS (8)
  - ASPARTATE AMINOTRANSFERASE INCREASED [None]
  - BILIRUBIN CONJUGATED INCREASED [None]
  - GASTRIC DISORDER [None]
  - HEPATOMEGALY [None]
  - GAMMA-GLUTAMYLTRANSFERASE INCREASED [None]
  - DRUG INTOLERANCE [None]
  - LIVER DISORDER [None]
  - VOMITING [None]
